FAERS Safety Report 20412762 (Version 1)
Quarter: 2022Q1

REPORT INFORMATION
  Report Type: Spontaneous
  Country: FR (occurrence: FR)
  Receive Date: 20220201
  Receipt Date: 20220201
  Transmission Date: 20220423
  Serious: Yes (Other)
  Sender: FDA-Public Use
  Company Number: FR-PFIZER INC-202200120121

PATIENT
  Age: 30 Year
  Sex: Female

DRUGS (2)
  1. TALAZOPARIB [Suspect]
     Active Substance: TALAZOPARIB
     Indication: Breast cancer metastatic
     Dosage: UNK
     Dates: start: 202109
  2. TALAZOPARIB [Suspect]
     Active Substance: TALAZOPARIB
     Dosage: 0.75 MG, DAILY

REACTIONS (2)
  - Haemolytic anaemia [Unknown]
  - Aplasia pure red cell [Unknown]
